FAERS Safety Report 15945634 (Version 1)
Quarter: 2019Q1

REPORT INFORMATION
  Report Type: Report from Study
  Country: CN (occurrence: CN)
  Receive Date: 20190211
  Receipt Date: 20190211
  Transmission Date: 20190417
  Serious: Yes (Other)
  Sender: FDA-Public Use
  Company Number: CN-ROCHE-2256934

PATIENT

DRUGS (4)
  1. VINORELBINE [Suspect]
     Active Substance: VINORELBINE\VINORELBINE TARTRATE
     Indication: TRIPLE NEGATIVE BREAST CANCER
     Route: 042
  2. CAPECITABINE. [Suspect]
     Active Substance: CAPECITABINE
     Indication: TRIPLE NEGATIVE BREAST CANCER
     Route: 065
  3. DOCETAXEL. [Suspect]
     Active Substance: DOCETAXEL
     Indication: TRIPLE NEGATIVE BREAST CANCER
     Route: 042
  4. GEMCITABINE [Suspect]
     Active Substance: GEMCITABINE\GEMCITABINE HYDROCHLORIDE
     Indication: TRIPLE NEGATIVE BREAST CANCER
     Route: 042

REACTIONS (11)
  - Neutropenia [Recovered/Resolved]
  - Hepatic function abnormal [Recovered/Resolved]
  - Leukopenia [Recovered/Resolved]
  - Thrombocytopenia [Recovered/Resolved]
  - Palmar-plantar erythrodysaesthesia syndrome [Recovered/Resolved]
  - Stomatitis [Recovered/Resolved]
  - Alopecia [Recovered/Resolved]
  - Phlebitis [Recovered/Resolved]
  - Anaemia [Recovered/Resolved]
  - Gastrointestinal disorder [Recovered/Resolved]
  - Liver injury [Recovered/Resolved]
